FAERS Safety Report 6686770-0 (Version None)
Quarter: 2010Q2

REPORT INFORMATION
  Report Type: 
  Country: None (occurrence: None)
  Receive Date: 20100414
  Receipt Date: 20100405
  Transmission Date: 20101027
  Serious: No
  Sender: FDA-Public Use
  Company Number: 20108077

PATIENT
  Age: 16 Year
  Sex: Female

DRUGS (1)
  1. LIORESAL [Suspect]
     Indication: MUSCLE SPASTICITY
     Dosage: 149.8 MCG, DAILY, INTRATHECAL
     Route: 037

REACTIONS (3)
  - DEVICE MALFUNCTION [None]
  - DRUG INEFFECTIVE [None]
  - MUSCULOSKELETAL STIFFNESS [None]
